FAERS Safety Report 16383420 (Version 4)
Quarter: 2019Q4

REPORT INFORMATION
  Report Type: Spontaneous
  Country: US (occurrence: US)
  Receive Date: 20190603
  Receipt Date: 20191118
  Transmission Date: 20200122
  Serious: Yes (Other)
  Sender: FDA-Public Use
  Company Number: US-PFIZER INC-2019138354

PATIENT
  Age: 73 Year
  Sex: Female
  Weight: 117 kg

DRUGS (1)
  1. TIKOSYN [Suspect]
     Active Substance: DOFETILIDE
     Indication: ATRIAL FIBRILLATION
     Dosage: 500 MG, 2X/DAY
     Route: 048
     Dates: start: 20181220

REACTIONS (5)
  - Product prescribing error [Unknown]
  - Contusion [Recovering/Resolving]
  - Heart rate decreased [Recovered/Resolved]
  - Fall [Recovering/Resolving]
  - Panic reaction [Unknown]

NARRATIVE: CASE EVENT DATE: 20181220
